FAERS Safety Report 4274964-3 (Version None)
Quarter: 2004Q1

REPORT INFORMATION
  Report Type: 
  Country: None (occurrence: None)
  Receive Date: 20040120
  Receipt Date: 20040109
  Transmission Date: 20041129
  Serious: Yes (Death)
  Sender: FDA-Public Use
  Company Number: 04-01-0071

PATIENT
  Age: 5 Year
  Sex: Female
  Weight: 15 kg

DRUGS (2)
  1. ASPIRIN W/CODEINE TABLETS [Suspect]
     Dosage: 250 MG ORAL
     Route: 048
  2. COUGH SYRUP [Concomitant]

REACTIONS (28)
  - ALANINE AMINOTRANSFERASE INCREASED [None]
  - ASPARTATE AMINOTRANSFERASE INCREASED [None]
  - ATRIOVENTRICULAR BLOCK COMPLETE [None]
  - BLOOD GLUCOSE DECREASED [None]
  - BLOOD PRESSURE DECREASED [None]
  - BLOOD SODIUM INCREASED [None]
  - BODY TEMPERATURE DECREASED [None]
  - BRADYCARDIA [None]
  - CARDIAC ARREST [None]
  - CARDIO-RESPIRATORY ARREST [None]
  - DECREASED ACTIVITY [None]
  - DEHYDRATION [None]
  - DEPRESSED LEVEL OF CONSCIOUSNESS [None]
  - DRUG TOXICITY [None]
  - EPISTAXIS [None]
  - HEART RATE INCREASED [None]
  - IRRITABILITY [None]
  - MEDICATION ERROR [None]
  - MYOCARDIAL INFARCTION [None]
  - PALLOR [None]
  - POLYDIPSIA [None]
  - POLYURIA [None]
  - RESPIRATORY RATE INCREASED [None]
  - RHINORRHOEA [None]
  - SOMNOLENCE [None]
  - STUPOR [None]
  - VENTRICULAR TACHYCARDIA [None]
  - VOMITING [None]
